FAERS Safety Report 4817324-6 (Version None)
Quarter: 2005Q4

REPORT INFORMATION
  Report Type: 
  Country: None (occurrence: None)
  Receive Date: 20051031
  Receipt Date: 20051018
  Transmission Date: 20060501
  Serious: Yes (Hospitalization, Other)
  Sender: FDA-Public Use
  Company Number: USA-2004-0014916

PATIENT
  Age: 56 Year
  Sex: Female
  Weight: 56.7 kg

DRUGS (24)
  1. OXYCONTIN [Suspect]
     Indication: PAIN
     Dosage: 30 MG, TID, ORAL
     Route: 048
  2. OXYCODONE HCL [Concomitant]
  3. MORPHINE SULFATE [Concomitant]
  4. KLONOPIN [Concomitant]
  5. TRAZODONE HCL [Concomitant]
  6. CELEXA [Concomitant]
  7. PREMARIN [Concomitant]
  8. SYNTHROID [Concomitant]
  9. MULTIVITAMINS (PANTHENOL, NICOTINAMIDE, RIBOFLAVIN, THIAMINE HYDROCHLO [Concomitant]
  10. CALCIUM CARBONATE (CALCIUM CARBONATE) [Concomitant]
  11. LIPITOR [Concomitant]
  12. TYLENOL (CAPLET) [Concomitant]
  13. MIDRIN (DICHLORALPHENAZONE, ISOMETHEPTENE) [Concomitant]
  14. ZOLOFT [Concomitant]
  15. PEPCID [Concomitant]
  16. EFFEXOR [Concomitant]
  17. BUSPAR [Concomitant]
  18. RISPERDAL [Concomitant]
  19. HYDROCHLOROTHIAZIDE [Concomitant]
  20. NORTRIPTYLINE HCL [Concomitant]
  21. PAXIL [Concomitant]
  22. DEPAKOTE [Concomitant]
  23. PERCOCET [Concomitant]
  24. KEFLEX (CERALEXIN MONOHYDRATE) [Concomitant]

REACTIONS (75)
  - AFFECTIVE DISORDER [None]
  - AGITATION [None]
  - ANGER [None]
  - ANHEDONIA [None]
  - ANOREXIA [None]
  - ANXIETY [None]
  - APATHY [None]
  - ARTHRALGIA [None]
  - ARTHRITIS [None]
  - ASTHENIA [None]
  - BACK PAIN [None]
  - BLOOD CREATININE INCREASED [None]
  - BLOOD POTASSIUM INCREASED [None]
  - BONE PAIN [None]
  - BURSITIS [None]
  - CHEST DISCOMFORT [None]
  - CLUSTER HEADACHE [None]
  - CONDITION AGGRAVATED [None]
  - CONFUSIONAL STATE [None]
  - COUGH [None]
  - DELUSIONAL DISORDER, UNSPECIFIED TYPE [None]
  - DEPRESSED MOOD [None]
  - DEPRESSION [None]
  - DIARRHOEA [None]
  - DISTURBANCE IN ATTENTION [None]
  - DISTURBANCE IN SOCIAL BEHAVIOUR [None]
  - DRUG ABUSER [None]
  - DRUG DEPENDENCE [None]
  - DRUG WITHDRAWAL SYNDROME [None]
  - DYSPEPSIA [None]
  - DYSPHORIA [None]
  - DYSTHYMIC DISORDER [None]
  - DYSURIA [None]
  - FATIGUE [None]
  - FEELING ABNORMAL [None]
  - FEELING GUILTY [None]
  - FEELINGS OF WORTHLESSNESS [None]
  - FIBROMYALGIA [None]
  - FLANK PAIN [None]
  - FLAT AFFECT [None]
  - HYPERSOMNIA [None]
  - INADEQUATE ANALGESIA [None]
  - INAPPROPRIATE SCHEDULE OF DRUG ADMINISTRATION [None]
  - INCORRECT DOSE ADMINISTERED [None]
  - IRRITABILITY [None]
  - JUDGEMENT IMPAIRED [None]
  - MEMORY IMPAIRMENT [None]
  - MOOD ALTERED [None]
  - MUSCULOSKELETAL DISCOMFORT [None]
  - MYALGIA [None]
  - NECROSIS [None]
  - NIGHTMARE [None]
  - OBSESSIVE-COMPULSIVE DISORDER [None]
  - OVERDOSE [None]
  - PAIN [None]
  - PAIN IN EXTREMITY [None]
  - PARANOIA [None]
  - PARTNER STRESS [None]
  - PERSONALITY CHANGE [None]
  - POLLAKIURIA [None]
  - POLYSUBSTANCE ABUSE [None]
  - POST-TRAUMATIC STRESS DISORDER [None]
  - PSYCHIATRIC SYMPTOM [None]
  - PSYCHOMOTOR SKILLS IMPAIRED [None]
  - RESPIRATORY DISORDER [None]
  - RESTLESSNESS [None]
  - SELF MUTILATION [None]
  - SELF-INJURIOUS IDEATION [None]
  - STRESS [None]
  - SUICIDAL IDEATION [None]
  - UPPER RESPIRATORY TRACT INFECTION [None]
  - URETERIC OBSTRUCTION [None]
  - VAGINAL PAIN [None]
  - WEIGHT DECREASED [None]
  - WEIGHT INCREASED [None]
